FAERS Safety Report 15547622 (Version 2)
Quarter: 2018Q4

REPORT INFORMATION
  Report Type: Spontaneous
  Country: US (occurrence: US)
  Receive Date: 20181024
  Receipt Date: 20181218
  Transmission Date: 20190205
  Serious: Yes (Hospitalization, Other)
  Sender: FDA-Public Use
  Company Number: US-OTSUKA-2018_019904

PATIENT

DRUGS (1)
  1. ABILIFY [Suspect]
     Active Substance: ARIPIPRAZOLE
     Indication: SCHIZOPHRENIA
     Dosage: UNK UNK, QD
     Route: 065
     Dates: start: 2007, end: 201809

REACTIONS (15)
  - Dermatillomania [Unknown]
  - Bankruptcy [Unknown]
  - Suicidal ideation [Unknown]
  - Sexual dysfunction [Unknown]
  - Compulsive shopping [Unknown]
  - Condition aggravated [Recovered/Resolved]
  - Suicide attempt [Unknown]
  - Eating disorder [Unknown]
  - Gambling disorder [Recovered/Resolved]
  - Sexually transmitted disease [Unknown]
  - Compulsive sexual behaviour [Unknown]
  - Obsessive-compulsive disorder [Unknown]
  - Mental disorder [Unknown]
  - Trichotillomania [Unknown]
  - Economic problem [Unknown]
